FAERS Safety Report 13753308 (Version 2)
Quarter: 2017Q3

REPORT INFORMATION
  Report Type: Spontaneous
  Country: CA (occurrence: CA)
  Receive Date: 20170713
  Receipt Date: 20170713
  Transmission Date: 20171127
  Serious: Yes (Death, Other)
  Sender: FDA-Public Use
  Company Number: CA-JNJFOC-20170705342

PATIENT
  Age: 14 Year
  Sex: Male

DRUGS (1)
  1. DURAGESIC [Suspect]
     Active Substance: FENTANYL
     Indication: OROPHARYNGEAL PAIN
     Route: 062

REACTIONS (3)
  - Respiratory arrest [Fatal]
  - Product use issue [Unknown]
  - Off label use [Unknown]
